FAERS Safety Report 16849648 (Version 1)
Quarter: 2019Q3

REPORT INFORMATION
  Report Type: Spontaneous
  Country: QA (occurrence: QA)
  Receive Date: 20190925
  Receipt Date: 20190925
  Transmission Date: 20191005
  Serious: Yes (Death, Hospitalization)
  Sender: FDA-Public Use
  Company Number: QA-SCIEGEN PHARMACEUTICALS INC-2019SCILIT00265

PATIENT
  Age: 67 Year
  Sex: Male

DRUGS (1)
  1. ATORVASTATIN CALCIUM. [Suspect]
     Active Substance: ATORVASTATIN CALCIUM

REACTIONS (5)
  - Acute kidney injury [Unknown]
  - Death [Fatal]
  - Rhabdomyolysis [Unknown]
  - Cardiac arrest [Unknown]
  - Hepatitis [Unknown]
